FAERS Safety Report 9564425 (Version 3)
Quarter: 2014Q1

REPORT INFORMATION
  Report Type: Spontaneous
  Country: US (occurrence: US)
  Receive Date: 20130930
  Receipt Date: 20140127
  Transmission Date: 20141002
  Serious: Yes (Other)
  Sender: FDA-Public Use
  Company Number: US-JNJFOC-20130911016

PATIENT
  Age: 60 Year
  Sex: Female
  Weight: 72.12 kg

DRUGS (2)
  1. SUDAFED PE PRESSURE + PAIN + COUGH [Suspect]
     Indication: SEASONAL ALLERGY
     Route: 048
     Dates: start: 20130913, end: 20130916
  2. SUDAFED PE PRESSURE + PAIN + COUGH [Suspect]
     Indication: SINUS DISORDER
     Route: 048
     Dates: start: 20130913, end: 20130916

REACTIONS (2)
  - Blood pressure increased [Recovered/Resolved]
  - Medication error [Unknown]
